FAERS Safety Report 10728882 (Version 1)
Quarter: 2015Q1

REPORT INFORMATION
  Report Type: Spontaneous
  Country: IT (occurrence: IT)
  Receive Date: 20150122
  Receipt Date: 20150122
  Transmission Date: 20150721
  Serious: Yes (Hospitalization)
  Sender: FDA-Public Use
  Company Number: IT-CIPLA LTD.-2015IT00578

PATIENT

DRUGS (2)
  1. CITALOPRAM [Suspect]
     Active Substance: CITALOPRAM HYDROBROMIDE
     Indication: MAJOR DEPRESSION
     Dosage: 40 MG, QD
  2. FUROSEMIDE. [Suspect]
     Active Substance: FUROSEMIDE
     Indication: MAJOR DEPRESSION
     Dosage: 25 MG, UNK

REACTIONS (9)
  - Hypokalaemia [Recovered/Resolved]
  - Electrocardiogram QT prolonged [Recovered/Resolved]
  - Diarrhoea [Unknown]
  - Influenza [Unknown]
  - Ventricular tachycardia [Unknown]
  - Torsade de pointes [Recovered/Resolved]
  - Syncope [Unknown]
  - Hypochloraemia [Recovered/Resolved]
  - Electrocardiogram ST-T segment depression [Unknown]
